FAERS Safety Report 14386510 (Version 1)
Quarter: 2018Q1

REPORT INFORMATION
  Report Type: Spontaneous
  Country: US (occurrence: US)
  Receive Date: 20180115
  Receipt Date: 20180115
  Transmission Date: 20180509
  Serious: Yes (Other)
  Sender: FDA-Public Use
  Company Number: US-SA-2017SA135313

PATIENT
  Age: 53 Year
  Sex: Female
  Weight: 99.33 kg

DRUGS (8)
  1. CELEXA [Concomitant]
     Active Substance: CITALOPRAM HYDROBROMIDE
     Route: 065
  2. NEXIUM [Concomitant]
     Active Substance: ESOMEPRAZOLE MAGNESIUM
     Route: 065
  3. CALCIUM [Concomitant]
     Active Substance: CALCIUM
     Route: 065
  4. ARIMIDEX [Concomitant]
     Active Substance: ANASTROZOLE
     Route: 065
  5. EVISTA [Concomitant]
     Active Substance: RALOXIFENE HYDROCHLORIDE
     Route: 065
  6. TAXOTERE [Suspect]
     Active Substance: DOCETAXEL
     Route: 051
     Dates: start: 20040414, end: 20040414
  7. TAXOTERE [Suspect]
     Active Substance: DOCETAXEL
     Route: 051
     Dates: start: 20040618, end: 20040618
  8. NITROSTAT [Concomitant]
     Active Substance: NITROGLYCERIN
     Route: 060

REACTIONS (2)
  - Alopecia [Not Recovered/Not Resolved]
  - Psychological trauma [Unknown]

NARRATIVE: CASE EVENT DATE: 200404
